FAERS Safety Report 15762973 (Version 4)
Quarter: 2019Q2

REPORT INFORMATION
  Report Type: Report from Study
  Country: US (occurrence: US)
  Receive Date: 20181226
  Receipt Date: 20190408
  Transmission Date: 20190711
  Serious: Yes (Other)
  Sender: FDA-Public Use
  Company Number: US-ACTELION-A-US2018-174384

PATIENT
  Age: 54 Year
  Sex: Female
  Weight: 58.96 kg

DRUGS (6)
  1. OPSUMIT [Suspect]
     Active Substance: MACITENTAN
     Indication: PULMONARY ARTERIAL HYPERTENSION
     Dosage: 10 MG, QD
     Route: 048
     Dates: start: 201805
  2. ADEMPAS [Concomitant]
     Active Substance: RIOCIGUAT
     Dosage: 2.5 MG, UNK
     Dates: start: 201712
  3. TESSALON [Concomitant]
     Active Substance: BENZONATATE
     Dosage: 100 MG, TID, PRN
     Dates: start: 2016
  4. REMODULIN [Suspect]
     Active Substance: TREPROSTINIL
     Indication: PRODUCT USED FOR UNKNOWN INDICATION
     Dosage: 10 MG, UNK
     Route: 065
     Dates: start: 201711
  5. SINGULAIR [Concomitant]
     Active Substance: MONTELUKAST SODIUM
     Dosage: 10 MG, UNK
     Dates: start: 2016
  6. ALBUTEROL. [Concomitant]
     Active Substance: ALBUTEROL
     Dosage: 2.5 MG, BID
     Dates: start: 2016

REACTIONS (17)
  - Pain in extremity [Unknown]
  - Pruritus [Unknown]
  - Peripheral swelling [Unknown]
  - Wheezing [Not Recovered/Not Resolved]
  - Skin infection [Recovering/Resolving]
  - Fluid retention [Unknown]
  - Nasal congestion [Not Recovered/Not Resolved]
  - Product dose omission [Unknown]
  - Memory impairment [Unknown]
  - Surgery [Unknown]
  - Rhinorrhoea [Recovering/Resolving]
  - Chest discomfort [Not Recovered/Not Resolved]
  - Cough [Not Recovered/Not Resolved]
  - Nasopharyngitis [Not Recovered/Not Resolved]
  - Dyspnoea [Unknown]
  - Oxygen consumption increased [Unknown]
  - Sneezing [Recovering/Resolving]

NARRATIVE: CASE EVENT DATE: 20181002
